FAERS Safety Report 8890116 (Version 1)
Quarter: 2012Q4

REPORT INFORMATION
  Report Type: 
  Country: CA (occurrence: CA)
  Receive Date: 20121106
  Receipt Date: 20121106
  Transmission Date: 20130627
  Serious: Yes (Hospitalization, Other)
  Sender: FDA-Public Use
  Company Number: PHMT2005CA00624

PATIENT
  Sex: Female

DRUGS (8)
  1. SANDOSTATIN LAR [Suspect]
     Indication: GASTRIC CANCER
     Dosage: 20 mg, once a month
     Dates: start: 20051018
  2. SANDOSTATIN LAR [Suspect]
     Dosage: 30 mg, QMO
  3. SANDOSTATIN [Suspect]
     Indication: GASTRIC CANCER
     Route: 042
  4. ALDACTONE [Concomitant]
     Dosage: 100 mg, UNK
  5. APO-FUROSEMIDE [Concomitant]
  6. APO-NADOL [Concomitant]
  7. URO-SULFA [Concomitant]
  8. URSO [Concomitant]

REACTIONS (27)
  - Portal hypertension [Recovered/Resolved]
  - Portal vein thrombosis [Recovered/Resolved]
  - Splenic vein thrombosis [Unknown]
  - Tumour rupture [Unknown]
  - Varices oesophageal [Unknown]
  - Hypotension [Unknown]
  - Fall [Unknown]
  - Rib fracture [Recovered/Resolved]
  - Loss of consciousness [Recovered/Resolved]
  - Haematemesis [Recovered/Resolved]
  - Gastric haemorrhage [Unknown]
  - Intestinal haemorrhage [Recovered/Resolved]
  - Gastrointestinal haemorrhage [Recovered/Resolved]
  - Haemoglobin decreased [Unknown]
  - Terminal state [Unknown]
  - Melaena [Recovered/Resolved]
  - Neoplasm [Unknown]
  - Sleep disorder [Unknown]
  - Nausea [Unknown]
  - Fatigue [Unknown]
  - Asthenia [Not Recovered/Not Resolved]
  - Dizziness [Unknown]
  - Heart rate increased [Unknown]
  - Diarrhoea [Unknown]
  - Constipation [Unknown]
  - Blood glucose increased [Unknown]
  - Blood glucose decreased [Unknown]
